FAERS Safety Report 5419082-3 (Version None)
Quarter: 2007Q3

REPORT INFORMATION
  Report Type: 
  Country: None (occurrence: None)
  Receive Date: 20070817
  Receipt Date: 20070817
  Transmission Date: 20080115
  Serious: Yes (Hospitalization)
  Sender: FDA-Public Use
  Company Number: None

PATIENT
  Sex: Female

DRUGS (6)
  1. CETUXIMAB [Suspect]
     Dosage: IV
     Route: 042
     Dates: start: 20070412
  2. GEMCITABINE HCL [Suspect]
     Dosage: IV
     Route: 042
     Dates: start: 20070412
  3. OXALIPLATIN [Suspect]
     Dosage: IV
     Route: 042
     Dates: start: 20070413
  4. AMITRIPTYLINE HCL [Concomitant]
  5. MORPHINE [Concomitant]
  6. TYLENOL (CAPLET) [Concomitant]

REACTIONS (5)
  - BILE DUCT OBSTRUCTION [None]
  - JAUNDICE [None]
  - MALIGNANT NEOPLASM PROGRESSION [None]
  - METASTASES TO PERITONEUM [None]
  - PANCREATIC CARCINOMA METASTATIC [None]
